FAERS Safety Report 20110682 (Version 1)
Quarter: 2021Q4

REPORT INFORMATION
  Report Type: Report from Study
  Country: IT (occurrence: IT)
  Receive Date: 20211124
  Receipt Date: 20211124
  Transmission Date: 20220303
  Serious: Yes (Hospitalization)
  Sender: FDA-Public Use
  Company Number: None

PATIENT
  Age: 60 Year
  Sex: Male

DRUGS (2)
  1. LITHIUM CARBONATE [Interacting]
     Active Substance: LITHIUM CARBONATE
     Indication: Bipolar disorder
     Dosage: 750MILLIGRAM,ADDITIONAL INFORMATION:INTERACTING DRUGS
     Route: 048
     Dates: end: 20210907
  2. QUETIAPINE FUMARATE [Interacting]
     Active Substance: QUETIAPINE FUMARATE
     Indication: Psychomotor hyperactivity
     Dosage: 600MILLIGRAM,ADDITIONAL INFORMATION:INTERACTING DRUGS
     Route: 048
     Dates: end: 20210907

REACTIONS (7)
  - Toxicity to various agents [Recovering/Resolving]
  - Asthenia [Recovering/Resolving]
  - Blood creatinine increased [Recovering/Resolving]
  - Clonus [Recovering/Resolving]
  - Tremor [Recovering/Resolving]
  - Acute kidney injury [Recovering/Resolving]
  - Drug interaction [Unknown]

NARRATIVE: CASE EVENT DATE: 20210904
